FAERS Safety Report 7659328-4 (Version None)
Quarter: 2011Q3

REPORT INFORMATION
  Report Type: 
  Country: None (occurrence: None)
  Receive Date: 20110802
  Receipt Date: 20110718
  Transmission Date: 20111222
  Serious: Yes (Hospitalization, Other)
  Sender: FDA-Public Use
  Company Number: 2011MA008991

PATIENT
  Age: 88 Year
  Sex: Female

DRUGS (3)
  1. FEVERALL [Suspect]
     Indication: OSTEOARTHRITIS
  2. AMLODIPINE [Concomitant]
  3. ALPRAZOLAM [Concomitant]

REACTIONS (7)
  - BLOOD ALKALINE PHOSPHATASE INCREASED [None]
  - NAUSEA [None]
  - VOMITING [None]
  - ABDOMINAL TENDERNESS [None]
  - TRANSAMINASES INCREASED [None]
  - DECREASED APPETITE [None]
  - ACCIDENTAL OVERDOSE [None]
